FAERS Safety Report 17582913 (Version 1)
Quarter: 2020Q1

REPORT INFORMATION
  Report Type: Other
  Country: US (occurrence: US)
  Receive Date: 20200325
  Receipt Date: 20200325
  Transmission Date: 20200409
  Serious: No
  Sender: FDA-Public Use
  Company Number: US-VERASTEM-2020-00012

PATIENT

DRUGS (1)
  1. COPIKTRA [Suspect]
     Active Substance: DUVELISIB
     Indication: B-CELL LYMPHOMA
     Dosage: 25 MG, BID
     Route: 048
     Dates: start: 20200118

REACTIONS (6)
  - Somnolence [Unknown]
  - Erythema [Unknown]
  - Pain [Unknown]
  - Myalgia [Unknown]
  - Faeces soft [Unknown]
  - Chills [Unknown]

NARRATIVE: CASE EVENT DATE: 20200118
